FAERS Safety Report 16380078 (Version 1)
Quarter: 2019Q2

REPORT INFORMATION
  Report Type: Spontaneous
  Country: US (occurrence: US)
  Receive Date: 20190601
  Receipt Date: 20190601
  Transmission Date: 20190711
  Serious: No
  Sender: FDA-Public Use
  Company Number: US-CELGENEUS-USA-20190509370

PATIENT
  Age: 58 Year
  Sex: Female

DRUGS (92)
  1. ALEVE [Concomitant]
     Active Substance: NAPROXEN SODIUM
     Route: 065
  2. CYCLOBENZAPRINE. [Concomitant]
     Active Substance: CYCLOBENZAPRINE
     Route: 065
  3. DOVONEX [Concomitant]
     Active Substance: CALCIPOTRIENE
     Route: 065
  4. SYNTHROID [Concomitant]
     Active Substance: LEVOTHYROXINE SODIUM
     Route: 065
  5. SYNTHROID [Concomitant]
     Active Substance: LEVOTHYROXINE SODIUM
     Route: 065
  6. TRAZODONE [Concomitant]
     Active Substance: TRAZODONE HYDROCHLORIDE
     Route: 065
  7. ALEVE [Concomitant]
     Active Substance: NAPROXEN SODIUM
     Indication: PRODUCT USED FOR UNKNOWN INDICATION
     Route: 065
  8. AUG BETAMET [Concomitant]
     Route: 065
  9. AUG BETAMET [Concomitant]
     Route: 065
  10. ELIDEL [Concomitant]
     Active Substance: PIMECROLIMUS
     Route: 065
  11. BETAMETH DIP [Concomitant]
     Route: 065
  12. IBUPROFEN. [Concomitant]
     Active Substance: IBUPROFEN
     Route: 065
  13. LEVOTHYROXIN [Concomitant]
     Active Substance: LEVOTHYROXINE
     Route: 065
  14. METFORMIN [Concomitant]
     Active Substance: METFORMIN HYDROCHLORIDE
     Route: 065
  15. ROPINROLE [Concomitant]
     Active Substance: ROPINIROLE
     Route: 065
  16. TRAZODONE [Concomitant]
     Active Substance: TRAZODONE HYDROCHLORIDE
     Route: 065
  17. ATORVASTATIN [Concomitant]
     Active Substance: ATORVASTATIN
     Route: 065
  18. BUSPIRONE [Concomitant]
     Active Substance: BUSPIRONE HYDROCHLORIDE
     Route: 065
  19. BUSPIRONE [Concomitant]
     Active Substance: BUSPIRONE HYDROCHLORIDE
     Route: 065
  20. CLOBETASOL [Concomitant]
     Active Substance: CLOBETASOL
     Route: 065
  21. CYCLOBENZAPRINE. [Concomitant]
     Active Substance: CYCLOBENZAPRINE
     Route: 065
  22. CYCLOBENZAPRINE. [Concomitant]
     Active Substance: CYCLOBENZAPRINE
     Route: 065
  23. DOVONEX [Concomitant]
     Active Substance: CALCIPOTRIENE
     Route: 065
  24. LISINOPRIL. [Concomitant]
     Active Substance: LISINOPRIL
     Indication: PRODUCT USED FOR UNKNOWN INDICATION
     Route: 065
  25. LISINOPRIL. [Concomitant]
     Active Substance: LISINOPRIL
     Route: 065
  26. TREMFYA [Concomitant]
     Active Substance: GUSELKUMAB
     Route: 065
  27. ROPINROLE [Concomitant]
     Active Substance: ROPINIROLE
     Indication: PRODUCT USED FOR UNKNOWN INDICATION
     Route: 065
  28. TRAZODONE [Concomitant]
     Active Substance: TRAZODONE HYDROCHLORIDE
     Indication: PRODUCT USED FOR UNKNOWN INDICATION
     Route: 065
  29. ALEVE [Concomitant]
     Active Substance: NAPROXEN SODIUM
     Route: 065
  30. ATORVASTATIN [Concomitant]
     Active Substance: ATORVASTATIN
     Indication: PRODUCT USED FOR UNKNOWN INDICATION
     Route: 065
  31. ATORVASTATIN [Concomitant]
     Active Substance: ATORVASTATIN
     Route: 065
  32. ELIDEL [Concomitant]
     Active Substance: PIMECROLIMUS
     Indication: PRODUCT USED FOR UNKNOWN INDICATION
     Route: 065
  33. ELIDEL [Concomitant]
     Active Substance: PIMECROLIMUS
     Route: 065
  34. ELIDEL [Concomitant]
     Active Substance: PIMECROLIMUS
     Route: 065
  35. CLOBETASOL [Concomitant]
     Active Substance: CLOBETASOL
     Indication: PRODUCT USED FOR UNKNOWN INDICATION
     Route: 065
  36. CLOBETASOL [Concomitant]
     Active Substance: CLOBETASOL
     Route: 065
  37. CLOBETASOL [Concomitant]
     Active Substance: CLOBETASOL
     Route: 065
  38. LEVOTHYROXIN [Concomitant]
     Active Substance: LEVOTHYROXINE
     Route: 065
  39. LEVOTHYROXIN [Concomitant]
     Active Substance: LEVOTHYROXINE
     Route: 065
  40. CYCLOBENZAPRINE. [Concomitant]
     Active Substance: CYCLOBENZAPRINE
     Route: 065
  41. DOVONEX [Concomitant]
     Active Substance: CALCIPOTRIENE
     Route: 065
  42. TREMFYA [Concomitant]
     Active Substance: GUSELKUMAB
     Route: 065
  43. ROPINROLE [Concomitant]
     Active Substance: ROPINIROLE
     Route: 065
  44. BUSPIRONE [Concomitant]
     Active Substance: BUSPIRONE HYDROCHLORIDE
     Indication: PRODUCT USED FOR UNKNOWN INDICATION
     Route: 065
  45. IBUPROFEN. [Concomitant]
     Active Substance: IBUPROFEN
     Indication: PRODUCT USED FOR UNKNOWN INDICATION
     Route: 065
  46. IBUPROFEN. [Concomitant]
     Active Substance: IBUPROFEN
     Route: 065
  47. IBUPROFEN. [Concomitant]
     Active Substance: IBUPROFEN
     Route: 065
  48. IBUPROFEN. [Concomitant]
     Active Substance: IBUPROFEN
     Route: 065
  49. METFORMIN [Concomitant]
     Active Substance: METFORMIN HYDROCHLORIDE
     Indication: PRODUCT USED FOR UNKNOWN INDICATION
     Route: 065
  50. TREMFYA [Concomitant]
     Active Substance: GUSELKUMAB
     Route: 065
  51. TRAZODONE [Concomitant]
     Active Substance: TRAZODONE HYDROCHLORIDE
     Route: 065
  52. AUG BETAMET [Concomitant]
     Indication: PRODUCT USED FOR UNKNOWN INDICATION
     Route: 065
  53. BETAMETH DIP [Concomitant]
     Indication: PRODUCT USED FOR UNKNOWN INDICATION
     Route: 065
  54. BETAMETH DIP [Concomitant]
     Route: 065
  55. BETAMETH DIP [Concomitant]
     Route: 065
  56. GABAPENTIN. [Concomitant]
     Active Substance: GABAPENTIN
     Route: 065
  57. GABAPENTIN. [Concomitant]
     Active Substance: GABAPENTIN
     Route: 065
  58. BUSPIRONE [Concomitant]
     Active Substance: BUSPIRONE HYDROCHLORIDE
     Route: 065
  59. LEVOTHYROXIN [Concomitant]
     Active Substance: LEVOTHYROXINE
     Route: 065
  60. CYCLOBENZAPRINE. [Concomitant]
     Active Substance: CYCLOBENZAPRINE
     Indication: PRODUCT USED FOR UNKNOWN INDICATION
     Route: 065
  61. DOVONEX [Concomitant]
     Active Substance: CALCIPOTRIENE
     Indication: PRODUCT USED FOR UNKNOWN INDICATION
     Route: 065
  62. LISINOPRIL. [Concomitant]
     Active Substance: LISINOPRIL
     Route: 065
  63. METFORMIN [Concomitant]
     Active Substance: METFORMIN HYDROCHLORIDE
     Route: 065
  64. TREMFYA [Concomitant]
     Active Substance: GUSELKUMAB
     Indication: PRODUCT USED FOR UNKNOWN INDICATION
     Route: 065
  65. ROPINROLE [Concomitant]
     Active Substance: ROPINIROLE
     Route: 065
  66. ROPINROLE [Concomitant]
     Active Substance: ROPINIROLE
     Route: 065
  67. SYNTHROID [Concomitant]
     Active Substance: LEVOTHYROXINE SODIUM
     Indication: PRODUCT USED FOR UNKNOWN INDICATION
     Route: 065
  68. SYNTHROID [Concomitant]
     Active Substance: LEVOTHYROXINE SODIUM
     Route: 065
  69. TRAZODONE [Concomitant]
     Active Substance: TRAZODONE HYDROCHLORIDE
     Route: 065
  70. OTEZLA [Suspect]
     Active Substance: APREMILAST
     Indication: PSORIASIS
     Dosage: 60 MILLIGRAM
     Route: 048
     Dates: start: 20160106
  71. ATORVASTATIN [Concomitant]
     Active Substance: ATORVASTATIN
     Route: 065
  72. ATORVASTATIN [Concomitant]
     Active Substance: ATORVASTATIN
     Route: 065
  73. AUG BETAMET [Concomitant]
     Route: 065
  74. ELIDEL [Concomitant]
     Active Substance: PIMECROLIMUS
     Route: 065
  75. BETAMETH DIP [Concomitant]
     Route: 065
  76. GABAPENTIN. [Concomitant]
     Active Substance: GABAPENTIN
     Indication: PRODUCT USED FOR UNKNOWN INDICATION
     Route: 065
  77. CLOBETASOL [Concomitant]
     Active Substance: CLOBETASOL
     Route: 065
  78. LEVOTHYROXIN [Concomitant]
     Active Substance: LEVOTHYROXINE
     Indication: PRODUCT USED FOR UNKNOWN INDICATION
     Route: 065
  79. LISINOPRIL. [Concomitant]
     Active Substance: LISINOPRIL
     Route: 065
  80. LISINOPRIL. [Concomitant]
     Active Substance: LISINOPRIL
     Route: 065
  81. METFORMIN [Concomitant]
     Active Substance: METFORMIN HYDROCHLORIDE
     Route: 065
  82. SYNTHROID [Concomitant]
     Active Substance: LEVOTHYROXINE SODIUM
     Route: 065
  83. OTEZLA [Suspect]
     Active Substance: APREMILAST
     Indication: PSORIATIC ARTHROPATHY
  84. ALEVE [Concomitant]
     Active Substance: NAPROXEN SODIUM
     Route: 065
  85. ALEVE [Concomitant]
     Active Substance: NAPROXEN SODIUM
     Route: 065
  86. AUG BETAMET [Concomitant]
     Route: 065
  87. GABAPENTIN. [Concomitant]
     Active Substance: GABAPENTIN
     Route: 065
  88. GABAPENTIN. [Concomitant]
     Active Substance: GABAPENTIN
     Route: 065
  89. BUSPIRONE [Concomitant]
     Active Substance: BUSPIRONE HYDROCHLORIDE
     Route: 065
  90. DOVONEX [Concomitant]
     Active Substance: CALCIPOTRIENE
     Route: 065
  91. METFORMIN [Concomitant]
     Active Substance: METFORMIN HYDROCHLORIDE
     Route: 065
  92. TREMFYA [Concomitant]
     Active Substance: GUSELKUMAB
     Route: 065

REACTIONS (1)
  - Psoriasis [Not Recovered/Not Resolved]

NARRATIVE: CASE EVENT DATE: 201904
